FAERS Safety Report 5390115-6 (Version None)
Quarter: 2007Q3

REPORT INFORMATION
  Report Type: 
  Country: None (occurrence: None)
  Receive Date: 20070718
  Receipt Date: 20070713
  Transmission Date: 20080115
  Serious: Yes (Other)
  Sender: FDA-Public Use
  Company Number: B0478737A

PATIENT
  Age: 18 Year
  Sex: Male

DRUGS (2)
  1. SERETIDE [Suspect]
     Route: 055
  2. OXIS [Concomitant]
     Route: 055

REACTIONS (2)
  - AGGRESSION [None]
  - PSYCHOMOTOR HYPERACTIVITY [None]
